FAERS Safety Report 6771142-0 (Version None)
Quarter: 2010Q2

REPORT INFORMATION
  Report Type: 
  Country: None (occurrence: None)
  Receive Date: 20100616
  Receipt Date: 20100606
  Transmission Date: 20101027
  Serious: Yes (Other)
  Sender: FDA-Public Use
  Company Number: DE-SOLVAY-00310003738

PATIENT
  Sex: Male

DRUGS (3)
  1. CHEMOTHERAPY [Concomitant]
     Indication: DRUG USE FOR UNKNOWN INDICATION
     Dosage: DAILY DOSE:  UNKNOWN
     Route: 065
     Dates: start: 20090719, end: 20090819
  2. TESTOSTERONE [Suspect]
     Indication: BLOOD TESTOSTERONE ABNORMAL
     Dosage: DAILY DOSE: 50 MILLIGRAM(S)
     Route: 062
     Dates: start: 20090501, end: 20090820
  3. TESTOSTERONE [Suspect]
     Dosage: DAILY DOSE: 25 MILLIGRAM(S)
     Route: 062
     Dates: start: 20090821

REACTIONS (9)
  - ACNE [None]
  - ANXIETY [None]
  - DEPRESSION [None]
  - DISORIENTATION [None]
  - HAIR GROWTH ABNORMAL [None]
  - OEDEMA PERIPHERAL [None]
  - PARKINSONISM [None]
  - RESTLESSNESS [None]
  - VASODILATATION [None]
